FAERS Safety Report 10553823 (Version 3)
Quarter: 2015Q1

REPORT INFORMATION
  Report Type: Spontaneous
  Country: IT (occurrence: IT)
  Receive Date: 20141030
  Receipt Date: 20150211
  Transmission Date: 20150720
  Serious: Yes (Life-Threatening, Hospitalization)
  Sender: FDA-Public Use
  Company Number: IT-ROCHE-1480647

PATIENT
  Age: 87 Year
  Sex: Female
  Weight: 56 kg

DRUGS (6)
  1. HERCEPTIN [Suspect]
     Active Substance: TRASTUZUMAB
     Indication: BREAST CANCER METASTATIC
     Dosage: 150 MG; POWDER FOR CONCENTRATE FOR SOLUTION
     Route: 042
     Dates: start: 20140828, end: 20141009
  2. RATACAND [Concomitant]
     Active Substance: CANDESARTAN
     Dosage: 28 X 8 MG TABLETS
     Route: 048
  3. NAVELBINE [Suspect]
     Active Substance: VINORELBINE TARTRATE
     Indication: BREAST CANCER METASTATIC
     Dosage: 10 MG/ML;
     Route: 065
     Dates: start: 20140828, end: 20141009
  4. OMEPRAZOLE. [Concomitant]
     Active Substance: OMEPRAZOLE
  5. CYMBALTA [Concomitant]
     Active Substance: DULOXETINE HYDROCHLORIDE
     Dosage: 60 MG; GASTRO-RESISTANT HARD CAPSULES 28 CAPSULES
     Route: 048
  6. CARDIOASPIRIN [Concomitant]
     Active Substance: ASPIRIN
     Dosage: 100 MG; 100 MG GASTRO-RESISTANT TABLETS 30 TABLETS
     Route: 065

REACTIONS (6)
  - Hyperhidrosis [Recovered/Resolved]
  - Oxygen saturation decreased [Recovered/Resolved]
  - Bronchospasm [Recovered/Resolved]
  - Tachycardia [Recovered/Resolved]
  - Anaphylactic shock [Recovered/Resolved]
  - Hypertensive crisis [Recovered/Resolved]

NARRATIVE: CASE EVENT DATE: 20141009
